FAERS Safety Report 16400283 (Version 1)
Quarter: 2019Q2

REPORT INFORMATION
  Report Type: Spontaneous
  Country: US (occurrence: US)
  Receive Date: 20190606
  Receipt Date: 20190606
  Transmission Date: 20190711
  Serious: No
  Sender: FDA-Public Use
  Company Number: US-ALLERGAN-1838836US

PATIENT
  Age: 33 Year
  Sex: Female
  Weight: 170 kg

DRUGS (1)
  1. KYBELLA [Suspect]
     Active Substance: DEOXYCHOLIC ACID
     Indication: FAT TISSUE INCREASED
     Dosage: 4 ML, SINGLE
     Route: 058
     Dates: start: 20180621, end: 20180621

REACTIONS (2)
  - Injection site hypoaesthesia [Not Recovered/Not Resolved]
  - Injection site nodule [Not Recovered/Not Resolved]
